APPROVED DRUG PRODUCT: CHLORPROMAZINE HYDROCHLORIDE
Active Ingredient: CHLORPROMAZINE HYDROCHLORIDE
Strength: 30MG/ML
Dosage Form/Route: CONCENTRATE;ORAL
Application: A087032 | Product #001
Applicant: WOCKHARDT EU OPERATIONS (SWISS) AG
Approved: Jul 8, 1982 | RLD: No | RS: No | Type: DISCN